FAERS Safety Report 7231823-1 (Version None)
Quarter: 2011Q1

REPORT INFORMATION
  Report Type: 
  Country: None (occurrence: None)
  Receive Date: 20110118
  Receipt Date: 20100111
  Transmission Date: 20110831
  Serious: Yes (Hospitalization, Other)
  Sender: FDA-Public Use
  Company Number: US-TEVA-262905USA

PATIENT
  Sex: Female
  Weight: 80.449 kg

DRUGS (16)
  1. FOLATE SODIUM [Concomitant]
  2. METHOTREXATE SOLUTION FOR INJECTION, 25 MG/ML [Suspect]
     Route: 048
     Dates: start: 19840101
  3. PREDNISONE [Suspect]
     Dates: start: 19840101
  4. FOLIC ACID [Concomitant]
     Dates: start: 19840101
  5. NABUMETONE [Concomitant]
  6. OXYCET [Concomitant]
  7. ALENDRONATE SODIUM [Concomitant]
  8. LEVOTHYROXINE SODIUM [Concomitant]
  9. DOCUSATE SODIUM [Concomitant]
  10. CLINDAMYCIN [Concomitant]
  11. LEVOFLOXACIN [Concomitant]
  12. ATENOLOL [Concomitant]
  13. ETANERCEPT [Suspect]
     Indication: RHEUMATOID ARTHRITIS
     Route: 058
     Dates: start: 20060601
  14. LISINOPRIL [Concomitant]
  15. PANTOPRAZOLE SODIUM [Concomitant]
  16. OS-CAL [Concomitant]

REACTIONS (7)
  - HUMERUS FRACTURE [None]
  - BALANCE DISORDER [None]
  - FALL [None]
  - CARDIAC FAILURE CONGESTIVE [None]
  - CELLULITIS [None]
  - ANGIOPLASTY [None]
  - SKIN ULCER [None]
